FAERS Safety Report 4725093-3 (Version None)
Quarter: 2005Q3

REPORT INFORMATION
  Report Type: 
  Country: None (occurrence: None)
  Receive Date: 20050725
  Receipt Date: 20050718
  Transmission Date: 20060218
  Serious: Yes (Death, Hospitalization)
  Sender: FDA-Public Use
  Company Number: 05-07-1241

PATIENT
  Age: 77 Year
  Sex: Female

DRUGS (1)
  1. CIPROFLOXACIN [Suspect]
     Indication: OTITIS MEDIA

REACTIONS (17)
  - B-LYMPHOCYTE COUNT DECREASED [None]
  - CEREBRAL HAEMORRHAGE [None]
  - COORDINATION ABNORMAL [None]
  - DEEP VEIN THROMBOSIS [None]
  - DEPRESSED LEVEL OF CONSCIOUSNESS [None]
  - DISEASE RECURRENCE [None]
  - FACTOR XIII INHIBITION [None]
  - FATIGUE [None]
  - GASTRIC ULCER HAEMORRHAGE [None]
  - HAEMATEMESIS [None]
  - HAEMATOMA [None]
  - HAEMORRHAGE [None]
  - HEADACHE [None]
  - JUGULAR VEIN THROMBOSIS [None]
  - MUSCLE HAEMORRHAGE [None]
  - THROMBOSIS [None]
  - URINARY TRACT INFECTION [None]
